FAERS Safety Report 17257424 (Version 1)
Quarter: 2020Q1

REPORT INFORMATION
  Report Type: Spontaneous
  Country: IL (occurrence: IL)
  Receive Date: 20200110
  Receipt Date: 20200110
  Transmission Date: 20200409
  Serious: Yes (Other)
  Sender: FDA-Public Use
  Company Number: IL-ASTRAZENECA-2020SE00943

PATIENT
  Age: 80 Year
  Sex: Female

DRUGS (1)
  1. XIGDUO XR [Suspect]
     Active Substance: DAPAGLIFLOZIN PROPANEDIOL\METFORMIN HYDROCHLORIDE
     Dosage: 5/1000 MG, TWO TIMES A DAY
     Route: 048

REACTIONS (5)
  - Urinary incontinence [Unknown]
  - Heart rate increased [Recovered/Resolved]
  - Arrhythmia [Recovered/Resolved]
  - Micturition urgency [Recovered/Resolved with Sequelae]
  - Bladder discomfort [Unknown]
